FAERS Safety Report 9622721 (Version 1)
Quarter: 2013Q4

REPORT INFORMATION
  Report Type: Spontaneous
  Country: US (occurrence: None)
  Receive Date: 20131010
  Receipt Date: 20131010
  Transmission Date: 20140711
  Serious: Yes (Disabling, Other)
  Sender: FDA-Public Use
  Company Number: 2013-US-001467

PATIENT
  Age: 65 Year
  Sex: Male

DRUGS (1)
  1. XYREM [Suspect]
     Indication: PRODUCT USED FOR UNKNOWN INDICATION
     Route: 048
     Dates: start: 20090210

REACTIONS (5)
  - Spinal operation [None]
  - Lyme disease [None]
  - Condition aggravated [None]
  - Nasopharyngitis [None]
  - Fatigue [None]
